FAERS Safety Report 4525228-1 (Version None)
Quarter: 2004Q4

REPORT INFORMATION
  Report Type: 
  Country: None (occurrence: None)
  Receive Date: 20041117
  Receipt Date: 20040213
  Transmission Date: 20050328
  Serious: Yes (Other)
  Sender: FDA-Public Use
  Company Number: 2004S1000535

PATIENT
  Sex: Male

DRUGS (15)
  1. CLOZAPINE [Suspect]
     Indication: PSYCHOTIC DISORDER
     Dosage: 400MG QD, ORAL
     Route: 048
     Dates: start: 20020905, end: 20040203
  2. CLOZAPINE [Suspect]
     Indication: SCHIZOPHRENIA
     Dosage: 400MG QD, ORAL
     Route: 048
     Dates: start: 20020905, end: 20040203
  3. CLOZAPINE [Suspect]
     Indication: PSYCHOTIC DISORDER
     Dosage: 400MG QD, ORAL
     Route: 048
     Dates: start: 20040204, end: 20040219
  4. CLOZAPINE [Suspect]
     Indication: SCHIZOPHRENIA
     Dosage: 400MG QD, ORAL
     Route: 048
     Dates: start: 20040204, end: 20040219
  5. CLOZAPINE [Suspect]
     Indication: PSYCHOTIC DISORDER
     Dosage: 400MG QD, ORAL
     Route: 048
     Dates: start: 20040220
  6. CLOZAPINE [Suspect]
     Indication: SCHIZOPHRENIA
     Dosage: 400MG QD, ORAL
     Route: 048
     Dates: start: 20040220
  7. DIVALPROEX SODIUM [Concomitant]
  8. SERTRALINE [Concomitant]
  9. LORATADINE [Concomitant]
  10. GEMFIBROZIL [Concomitant]
  11. LORAZEPAM [Concomitant]
  12. DESMOPRESSIN [Concomitant]
  13. DOCUSATE SODIUM [Concomitant]
  14. CETIRIZINE HCL [Concomitant]
  15. FLUTICASONE NASAL SPRAY [Concomitant]

REACTIONS (1)
  - NEUTROPENIA [None]
